FAERS Safety Report 17637796 (Version 1)
Quarter: 2020Q2

REPORT INFORMATION
  Report Type: Spontaneous
  Country: GB (occurrence: GB)
  Receive Date: 20200407
  Receipt Date: 20200407
  Transmission Date: 20200713
  Serious: Yes (Death, Other)
  Sender: FDA-Public Use
  Company Number: GB-ACCORD-178295

PATIENT
  Age: 68 Year
  Sex: Female
  Weight: 76.6 kg

DRUGS (12)
  1. EPIRUBICIN [Concomitant]
     Active Substance: EPIRUBICIN
  2. TRASTUZUMAB. [Suspect]
     Active Substance: TRASTUZUMAB
     Indication: BREAST CANCER
     Route: 042
     Dates: start: 20200205, end: 20200205
  3. CYCLOPHOSPHAMIDE. [Concomitant]
     Active Substance: CYCLOPHOSPHAMIDE
  4. FILGRASTIM [Concomitant]
     Active Substance: FILGRASTIM
  5. DOCETAXEL. [Suspect]
     Active Substance: DOCETAXEL
     Indication: BREAST CANCER
     Route: 042
     Dates: start: 20200205, end: 20200205
  6. LORAZEPAM. [Concomitant]
     Active Substance: LORAZEPAM
  7. PERTUZUMAB. [Suspect]
     Active Substance: PERTUZUMAB
     Indication: BREAST CANCER
     Route: 042
     Dates: start: 20200205, end: 20200205
  8. ROLAPITANT [Concomitant]
     Active Substance: ROLAPITANT
  9. 5-FLUOROURACIL [Concomitant]
     Active Substance: FLUOROURACIL
  10. GRANISETRON [Concomitant]
     Active Substance: GRANISETRON
  11. DEXAMETHASONE. [Concomitant]
     Active Substance: DEXAMETHASONE
  12. METOCLOPRAMIDE. [Concomitant]
     Active Substance: METOCLOPRAMIDE

REACTIONS (2)
  - Respiratory symptom [Not Recovered/Not Resolved]
  - Acute interstitial pneumonitis [Fatal]

NARRATIVE: CASE EVENT DATE: 20200214
